FAERS Safety Report 24424864 (Version 1)
Quarter: 2024Q4

REPORT INFORMATION
  Report Type: Spontaneous
  Country: FR (occurrence: FR)
  Receive Date: 20241010
  Receipt Date: 20241010
  Transmission Date: 20250115
  Serious: Yes (Hospitalization)
  Sender: TEVA
  Company Number: None

PATIENT
  Age: 47 Year
  Sex: Male
  Weight: 73 kg

DRUGS (1)
  1. IBUPROFEN [Suspect]
     Active Substance: IBUPROFEN
     Indication: Chest pain
     Dosage: 400 MG X2/D
     Route: 048
     Dates: start: 20240826, end: 20240909

REACTIONS (1)
  - Pleural infection bacterial [Recovered/Resolved]

NARRATIVE: CASE EVENT DATE: 20240909
